FAERS Safety Report 7933734 (Version 2)
Quarter: 2014Q3

REPORT INFORMATION
  Report Type: Spontaneous
  Country: US (occurrence: US)
  Receive Date: 20110506
  Receipt Date: 20140813
  Transmission Date: 20150326
  Serious: Yes (Other)
  Sender: FDA-Public Use
  Company Number: US-ROCHE-743356

PATIENT
  Sex: Female
  Weight: 68.9 kg

DRUGS (1)
  1. ACCUTANE [Suspect]
     Active Substance: ISOTRETINOIN
     Indication: ACNE CYSTIC
     Route: 065
     Dates: start: 19840801, end: 19850101

REACTIONS (7)
  - Crohn^s disease [Unknown]
  - Emotional distress [Unknown]
  - Intestinal haemorrhage [Unknown]
  - Gastrointestinal injury [Unknown]
  - Colitis ulcerative [Unknown]
  - Depression [Unknown]
  - Inflammatory bowel disease [Unknown]
